FAERS Safety Report 21927515 (Version 3)
Quarter: 2023Q1

REPORT INFORMATION
  Report Type: Report from Study
  Country: PT (occurrence: PT)
  Receive Date: 20230130
  Receipt Date: 20230207
  Transmission Date: 20230418
  Serious: Yes (Other)
  Sender: FDA-Public Use
  Company Number: PT-ABBVIE-4277959

PATIENT
  Age: 76 Year
  Sex: Male

DRUGS (8)
  1. CARBIDOPA\LEVODOPA [Suspect]
     Active Substance: CARBIDOPA\LEVODOPA
     Indication: Parkinson^s disease
     Dosage: 20 MG + 5 MG?FREQUENCY TEXT: MORN:14CC;MAINT:3.2CC/H;EXTRA:1CC
     Route: 050
     Dates: start: 20201215, end: 20201215
  2. CARBIDOPA\LEVODOPA [Suspect]
     Active Substance: CARBIDOPA\LEVODOPA
     Dosage: 20 MG + 5 MG?FREQUENCY TEXT: MORN:11CC;MAINT:5.1CC/H;EXTRA:2CC
     Route: 050
     Dates: start: 20230111
  3. CARBIDOPA\LEVODOPA [Suspect]
     Active Substance: CARBIDOPA\LEVODOPA
     Dosage: 20 MG + 5 MG?FREQUENCY TEXT: MORN:9CC;MAINT:3.2CC/H;EXTRA:1CC
     Route: 050
     Dates: start: 20201216
  4. Daflon [Concomitant]
     Indication: Peripheral venous disease
     Dosage: (MICRONIZED PURIFIED FLAVONOID FRACTION)?START DATE TEXT: BEFORE DUODOPA
  5. SIMVASTATIN MEDINEO [Concomitant]
     Indication: Product used for unknown indication
     Dosage: START DATE TEXT: BEFORE DUODOPA
  6. MINIRIN [Concomitant]
     Active Substance: DESMOPRESSIN ACETATE
     Indication: Product used for unknown indication
     Dosage: START DATE TEXT: BEFORE DUODOPA
  7. LOSARTAN+HIDROCLOROTIAZIDA [Concomitant]
     Indication: Hypertension
     Dosage: START DATE TEXT: BEFORE DUODOPA
  8. RIVASTIGMINE [Concomitant]
     Active Substance: RIVASTIGMINE
     Indication: Parkinson^s disease
     Dosage: START DATE TEXT: BEFORE DUODOPA

REACTIONS (3)
  - Secretion discharge [Recovered/Resolved]
  - Stoma site pain [Recovered/Resolved]
  - Blister [Recovered/Resolved]

NARRATIVE: CASE EVENT DATE: 20230118
